FAERS Safety Report 20443284 (Version 2)
Quarter: 2022Q1

REPORT INFORMATION
  Report Type: Spontaneous
  Country: US (occurrence: US)
  Receive Date: 20220208
  Receipt Date: 20220215
  Transmission Date: 20220423
  Serious: Yes (Hospitalization, Other)
  Sender: FDA-Public Use
  Company Number: US-BoehringerIngelheim-2022-BI-152495

PATIENT
  Sex: Female

DRUGS (3)
  1. JARDIANCE [Suspect]
     Active Substance: EMPAGLIFLOZIN
     Indication: Type 2 diabetes mellitus
     Dates: start: 20211209
  2. OZEMPIC [Suspect]
     Active Substance: SEMAGLUTIDE
     Indication: Product used for unknown indication
  3. OZEMPIC [Suspect]
     Active Substance: SEMAGLUTIDE

REACTIONS (8)
  - COVID-19 pneumonia [Recovered/Resolved]
  - Osteomyelitis [Unknown]
  - Hypotension [Unknown]
  - Limb discomfort [Unknown]
  - Vomiting [Recovered/Resolved]
  - Sinusitis [Unknown]
  - Fatigue [Unknown]
  - Dehydration [Unknown]

NARRATIVE: CASE EVENT DATE: 20220110
